FAERS Safety Report 10399674 (Version 1)
Quarter: 2014Q3

REPORT INFORMATION
  Report Type: Spontaneous
  Country: FR (occurrence: FR)
  Receive Date: 20140821
  Receipt Date: 20140821
  Transmission Date: 20150326
  Serious: Yes (Hospitalization)
  Sender: FDA-Public Use
  Company Number: FR-TEVA-501843ISR

PATIENT
  Age: 39 Year
  Sex: Female

DRUGS (4)
  1. MAXILASE [Suspect]
     Active Substance: PANCRELIPASE
     Route: 048
     Dates: start: 20140511, end: 20140511
  2. AMOXICILLINE BASE [Suspect]
     Active Substance: AMOXICILLIN
     Route: 048
     Dates: start: 20140511, end: 20140511
  3. IBUPROFENE [Suspect]
     Active Substance: IBUPROFEN
     Route: 048
     Dates: start: 20140511, end: 20140511
  4. SPASFON [Suspect]
     Active Substance: PHLOROGLUCINOL
     Route: 048
     Dates: start: 20140511, end: 20140511

REACTIONS (1)
  - Toxicity to various agents [Recovered/Resolved]

NARRATIVE: CASE EVENT DATE: 20140511
